FAERS Safety Report 13716684 (Version 1)
Quarter: 2017Q3

REPORT INFORMATION
  Report Type: Spontaneous
  Country: US (occurrence: US)
  Receive Date: 20170705
  Receipt Date: 20170705
  Transmission Date: 20171127
  Serious: No
  Sender: FDA-Public Use
  Company Number: PHEH2017US019858

PATIENT
  Sex: Female

DRUGS (3)
  1. FEMARA [Suspect]
     Active Substance: LETROZOLE
     Dosage: 7.5 MG OF FEMARA 4-7 DAYS THE THIRD MONTH
     Route: 065
  2. FEMARA [Suspect]
     Active Substance: LETROZOLE
     Dosage: 5 MG OF FEMARA 4-7 DAYS THE SECOND MONTH
     Route: 065
  3. FEMARA [Suspect]
     Active Substance: LETROZOLE
     Indication: INFERTILITY
     Dosage: 2.5 MG, 4-7 DAYS/ MONTH
     Route: 065

REACTIONS (3)
  - Hepatic cyst [Unknown]
  - Product use in unapproved indication [Unknown]
  - Abdominal pain upper [Unknown]
